FAERS Safety Report 7185922-3 (Version None)
Quarter: 2010Q4

REPORT INFORMATION
  Report Type: 
  Country: None (occurrence: None)
  Receive Date: 20101222
  Receipt Date: 20101218
  Transmission Date: 20110411
  Serious: Yes (Life-Threatening, Other)
  Sender: FDA-Public Use
  Company Number: PHHY2010DE86195

PATIENT
  Age: 7 Year
  Sex: Female

DRUGS (19)
  1. METHOTREXATE [Suspect]
     Indication: ACUTE MYELOID LEUKAEMIA
     Dosage: 10 TO 12MG
     Route: 037
  2. METHOTREXATE [Suspect]
     Dosage: 1000 MG/M2
     Route: 042
  3. PREDNISONE [Suspect]
     Dosage: 60 MG/M2
     Route: 048
  4. VINCRISTINE (NGX) [Suspect]
     Dosage: 1.5 MG/M2, 50 PERCENT
  5. CYTARABINE [Suspect]
     Dosage: 75 MG/M2- 50 PERCENT
  6. CYTARABINE [Suspect]
     Dosage: 66 PERCENT
  7. CYTARABINE [Suspect]
     Dosage: 75 PERCENT
  8. DEXAMETHASONE [Suspect]
     Dosage: 10 MG/M2
  9. CYCLOPHOSPHAMIDE [Suspect]
     Dosage: 1000 MG/M2
  10. CYCLOPHOSPHAMIDE [Suspect]
     Dosage: 250 MG/M2
  11. MERCAPTOPURINE [Suspect]
     Dosage: 60 MG/M2, 50 PERCENT
  12. MERCAPTOPURINE [Suspect]
     Dosage: 66 PERCENT
  13. MERCAPTOPURINE [Suspect]
     Dosage: 25 MG/M2
     Route: 048
  14. THIOGUANINE [Suspect]
     Dosage: 60 MG/M2
  15. DAUNORUBICIN HCL [Suspect]
     Dosage: 30 MG/, 50 PERCENT
  16. DAUNORUBICIN HCL [Suspect]
     Dosage: 20 MG/M2
  17. ASPARAGINASE [Suspect]
     Dosage: 5000 IE/M2, 50 PERCENT
  18. ASPARAGINASE [Suspect]
     Dosage: 10 000 IE/M2
  19. ANTIFUNGALS [Suspect]

REACTIONS (11)
  - BRONCHITIS [None]
  - CANDIDA PNEUMONIA [None]
  - CANDIDA SEPSIS [None]
  - CENTRAL NERVOUS SYSTEM LESION [None]
  - CONVULSION [None]
  - ENCEPHALITIC INFECTION [None]
  - MUTISM [None]
  - NEUTROPENIA [None]
  - PNEUMONIA [None]
  - RESPIRATORY TRACT INFECTION [None]
  - SUBCLAVIAN VEIN THROMBOSIS [None]
